FAERS Safety Report 25270976 (Version 1)
Quarter: 2025Q2

REPORT INFORMATION
  Report Type: Spontaneous
  Country: FR (occurrence: FR)
  Receive Date: 20250506
  Receipt Date: 20250506
  Transmission Date: 20250717
  Serious: Yes (Hospitalization, Other)
  Sender: BRISTOL-MYERS SQUIBB COMPANY
  Company Number: FR-BRISTOL-MYERS SQUIBB COMPANY-2025-064497

PATIENT
  Age: 83 Year
  Sex: Male
  Weight: 67 kg

DRUGS (7)
  1. ELIQUIS [Suspect]
     Active Substance: APIXABAN
     Indication: Product used for unknown indication
     Dates: start: 20250402, end: 20250404
  2. ELIQUIS [Suspect]
     Active Substance: APIXABAN
  3. IRBESARTAN [Concomitant]
     Active Substance: IRBESARTAN
     Indication: Blood pressure abnormal
  4. PRAVASTATIN [Concomitant]
     Active Substance: PRAVASTATIN
     Indication: Blood cholesterol abnormal
  5. AMIODARONE [Concomitant]
     Active Substance: AMIODARONE
     Indication: Hypertension
  6. CLOPIDOGREL [Concomitant]
     Active Substance: CLOPIDOGREL BISULFATE
     Indication: Cardiac disorder
  7. LERCANIDIPINE [Concomitant]
     Active Substance: LERCANIDIPINE
     Indication: Product used for unknown indication

REACTIONS (5)
  - Renal colic [Unknown]
  - Treatment noncompliance [Unknown]
  - Coronary artery disease [Unknown]
  - Off label use [Unknown]
  - Post procedural haematuria [Unknown]

NARRATIVE: CASE EVENT DATE: 20250401
